FAERS Safety Report 7187350-3 (Version None)
Quarter: 2010Q4

REPORT INFORMATION
  Report Type: 
  Country: None (occurrence: None)
  Receive Date: 20101222
  Receipt Date: 20101221
  Transmission Date: 20110411
  Serious: Yes (Life-Threatening, Hospitalization)
  Sender: FDA-Public Use
  Company Number: US-ACTELION-A-NJ2010-42197

PATIENT

DRUGS (3)
  1. VELETRI [Suspect]
     Indication: PULMONARY ARTERIAL HYPERTENSION
     Dosage: 9 NG/KG, PER MIN
     Route: 042
     Dates: start: 20101111, end: 20101101
  2. SILDENAFIL [Concomitant]
  3. ASPIRIN [Concomitant]

REACTIONS (4)
  - CARDIO-RESPIRATORY ARREST [None]
  - DEHYDRATION [None]
  - ENCEPHALOPATHY [None]
  - VOMITING [None]
